FAERS Safety Report 16494271 (Version 1)
Quarter: 2019Q2

REPORT INFORMATION
  Report Type: Report from Study
  Country: ES (occurrence: ES)
  Receive Date: 20190628
  Receipt Date: 20190628
  Transmission Date: 20190711
  Serious: Yes (Other)
  Sender: FDA-Public Use
  Company Number: ES-ACCORD-135324

PATIENT
  Age: 39 Year
  Sex: Female

DRUGS (1)
  1. LEVETIRACETAM. [Suspect]
     Active Substance: LEVETIRACETAM
     Indication: EPILEPSY
     Dosage: 2000 MG  MONOTHERAPY ,1000 MG

REACTIONS (3)
  - Abortion spontaneous [Unknown]
  - Maternal exposure during pregnancy [Unknown]
  - Stillbirth [Unknown]
